FAERS Safety Report 6010507-1 (Version None)
Quarter: 2008Q4

REPORT INFORMATION
  Report Type: 
  Country: None (occurrence: None)
  Receive Date: 20081218
  Receipt Date: 20081209
  Transmission Date: 20090506
  Serious: Yes (Other)
  Sender: FDA-Public Use
  Company Number: JP-ASTRAZENECA-2008SE05700

PATIENT
  Sex: Male

DRUGS (2)
  1. AMIAS [Suspect]
     Indication: HYPERTENSION
     Route: 048
  2. OMEPRAZOLE [Concomitant]
     Route: 065

REACTIONS (2)
  - CHOLECYSTITIS [None]
  - CHOLELITHIASIS [None]
